FAERS Safety Report 10545270 (Version 1)
Quarter: 2014Q4

REPORT INFORMATION
  Report Type: Spontaneous
  Country: US (occurrence: US)
  Receive Date: 20141027
  Receipt Date: 20141027
  Transmission Date: 20150529
  Serious: No
  Sender: FDA-Public Use
  Company Number: US-TEVA-517828USA

PATIENT
  Sex: Female

DRUGS (1)
  1. NUVIGIL [Suspect]
     Active Substance: ARMODAFINIL
     Dosage: 250 MILLIGRAM DAILY;

REACTIONS (3)
  - Memory impairment [Unknown]
  - Visual impairment [Unknown]
  - Gastrooesophageal reflux disease [Unknown]
